FAERS Safety Report 4608891-6 (Version None)
Quarter: 2005Q1

REPORT INFORMATION
  Report Type: 
  Country: None (occurrence: None)
  Receive Date: 20050309
  Receipt Date: 20050228
  Transmission Date: 20050727
  Serious: Yes (Death, Hospitalization)
  Sender: FDA-Public Use
  Company Number: 2005039011

PATIENT
  Age: 82 Year
  Sex: Female

DRUGS (14)
  1. LIPITOR [Suspect]
     Indication: HYPERLIPIDAEMIA
     Dosage: 5 MG (1 IN 1 D), ORAL
     Route: 048
     Dates: end: 20050218
  2. LANSOPRAZOLE [Concomitant]
  3. FUROSEMIDE [Concomitant]
  4. SINEMET [Concomitant]
  5. SENNOSIDE A+B (SENNOSIDE A+B) [Concomitant]
  6. LOSARTAN POTASSIUM [Concomitant]
  7. VOGLIBOSE (VOGLIBOSE) [Concomitant]
  8. ISOSORBIDE DINITRATE [Concomitant]
  9. TULOBUTEROL (TULOBUTEROL) [Concomitant]
  10. ACTIT (MAGNESIUM CHLORIDE ANHYDROUS, MALTOSE, POTASSIUM CHLORIDE, POTA [Concomitant]
  11. AMINOPHYLLIN [Concomitant]
  12. STRONG HOKUPHAGEN (AMINOACETIC ACID, CYSTEINE, GLYCYRRHIZIC ACID, AMMO [Concomitant]
  13. SODIUM BICARBONATE IN PLASTIC CONTAINER [Concomitant]
  14. INSULIN HUMAN (INSULIN HUMAN) [Concomitant]

REACTIONS (9)
  - ACIDOSIS [None]
  - ACUTE MYOCARDIAL INFARCTION [None]
  - ANURIA [None]
  - CARDIAC ARREST [None]
  - CARDIAC FAILURE [None]
  - PNEUMONIA [None]
  - RENAL FAILURE ACUTE [None]
  - RESPIRATORY ARREST [None]
  - RHABDOMYOLYSIS [None]
